FAERS Safety Report 12243483 (Version 2)
Quarter: 2016Q2

REPORT INFORMATION
  Report Type: Spontaneous
  Country: US (occurrence: US)
  Receive Date: 20160406
  Receipt Date: 20160412
  Transmission Date: 20160815
  Serious: No
  Sender: FDA-Public Use
  Company Number: US-TEVA-628373USA

PATIENT
  Sex: Female

DRUGS (1)
  1. PROAIR RESPICLICK [Suspect]
     Active Substance: ALBUTEROL SULFATE
     Dosage: 2 PUFFS EVERY 4 TO 6 HOURS AS NEEDED
     Route: 055

REACTIONS (2)
  - Device malfunction [Unknown]
  - Drug ineffective [Unknown]
